FAERS Safety Report 10209674 (Version 2)
Quarter: 2015Q2

REPORT INFORMATION
  Report Type: Report from Study
  Country: US (occurrence: US)
  Receive Date: 20140602
  Receipt Date: 20150630
  Transmission Date: 20150821
  Serious: Yes (Hospitalization, Other)
  Sender: FDA-Public Use
  Company Number: US-BIOGENIDEC-2014BI049382

PATIENT
  Sex: Female

DRUGS (4)
  1. AVONEX [Suspect]
     Active Substance: INTERFERON BETA-1A
     Indication: MULTIPLE SCLEROSIS
     Route: 030
  2. AVONEX [Suspect]
     Active Substance: INTERFERON BETA-1A
     Indication: MULTIPLE SCLEROSIS
     Route: 030
  3. AVONEX [Suspect]
     Active Substance: INTERFERON BETA-1A
     Indication: MULTIPLE SCLEROSIS
     Route: 030
     Dates: start: 20060311, end: 20070318
  4. AVONEX [Suspect]
     Active Substance: INTERFERON BETA-1A
     Indication: MULTIPLE SCLEROSIS
     Route: 030
     Dates: start: 20140523

REACTIONS (22)
  - Mobility decreased [Unknown]
  - General symptom [Not Recovered/Not Resolved]
  - Peripheral swelling [Unknown]
  - Osteoporosis [Not Recovered/Not Resolved]
  - Myoclonic epilepsy [Not Recovered/Not Resolved]
  - Cardiac failure congestive [Not Recovered/Not Resolved]
  - General physical health deterioration [Unknown]
  - Abasia [Not Recovered/Not Resolved]
  - Loss of consciousness [Unknown]
  - Seizure [Not Recovered/Not Resolved]
  - Blindness [Unknown]
  - Muscle atrophy [Not Recovered/Not Resolved]
  - Muscle spasms [Unknown]
  - Renal impairment [Unknown]
  - Tremor [Not Recovered/Not Resolved]
  - Sensory disturbance [Unknown]
  - Coordination abnormal [Not Recovered/Not Resolved]
  - Foot fracture [Not Recovered/Not Resolved]
  - Muscle disorder [Not Recovered/Not Resolved]
  - Sleep apnoea syndrome [Unknown]
  - Headache [Not Recovered/Not Resolved]
  - Urticaria [Unknown]
